FAERS Safety Report 10949833 (Version 1)
Quarter: 2015Q1

REPORT INFORMATION
  Report Type: Spontaneous
  Country: US (occurrence: None)
  Receive Date: 20150226
  Receipt Date: 20150226
  Transmission Date: 20150721
  Serious: Yes (Hospitalization)
  Sender: FDA-Public Use
  Company Number: TPA2010A05256

PATIENT
  Age: 67 Year
  Sex: Female

DRUGS (2)
  1. UNSPECIFIED MEDS (ALL OTHER THERAPEUTIC PRODUCTS) [Concomitant]
  2. ACTOS [Suspect]
     Active Substance: PIOGLITAZONE HYDROCHLORIDE
     Route: 048

REACTIONS (2)
  - Cardiac failure congestive [None]
  - Oedema [None]
